FAERS Safety Report 4583368-5 (Version None)
Quarter: 2005Q1

REPORT INFORMATION
  Report Type: 
  Country: None (occurrence: None)
  Receive Date: 20050125
  Receipt Date: 20041118
  Transmission Date: 20050727
  Serious: No
  Sender: FDA-Public Use
  Company Number: USA031049095

PATIENT
  Age: 75 Year
  Sex: Female
  Weight: 49 kg

DRUGS (4)
  1. FORTEO [Suspect]
     Indication: OSTEOPOROSIS
     Dosage: 20 UG/1 DAY
     Dates: start: 20030901
  2. OSCAL 500-D [Concomitant]
  3. ADVAIR [Concomitant]
  4. AMBIEN [Concomitant]

REACTIONS (6)
  - ERYTHEMA [None]
  - FATIGUE [None]
  - HEPATIC ENZYME INCREASED [None]
  - INJECTION SITE HAEMORRHAGE [None]
  - SLEEP DISORDER [None]
  - URINARY TRACT INFECTION [None]
